FAERS Safety Report 4372410-2 (Version None)
Quarter: 2004Q2

REPORT INFORMATION
  Report Type: 
  Country: None (occurrence: None)
  Receive Date: 20040602
  Receipt Date: 20040517
  Transmission Date: 20050107
  Serious: No
  Sender: FDA-Public Use
  Company Number: 2004AP01849

PATIENT
  Age: 63 Year
  Sex: Male
  Weight: 45.4 kg

DRUGS (10)
  1. MEROPEN [Suspect]
     Indication: PNEUMONIA BACTERIAL
     Dosage: 0.5 MG BID IVD
     Route: 041
     Dates: start: 20031212, end: 20031215
  2. DAONIL [Suspect]
     Indication: DIABETES MELLITUS
     Dosage: 2.5 MG TID PO
     Route: 048
     Dates: start: 20031023, end: 20031213
  3. DAONIL [Suspect]
     Indication: DIABETES MELLITUS
     Dosage: 2.5 MG DAILY PO
     Route: 048
     Dates: start: 20031214, end: 20031214
  4. HOKUNALIN [Concomitant]
  5. UNIPHYL [Concomitant]
  6. CLEANAL [Concomitant]
  7. KAMAG G [Concomitant]
  8. CISDYNE [Concomitant]
  9. LEVELON [Concomitant]
  10. RINCODE [Concomitant]

REACTIONS (3)
  - BLOOD GLUCOSE FLUCTUATION [None]
  - MARKEDLY REDUCED DIETARY INTAKE [None]
  - PNEUMONIA BACTERIAL [None]
